FAERS Safety Report 8131448-X (Version None)
Quarter: 2012Q1

REPORT INFORMATION
  Report Type: 
  Country: None (occurrence: None)
  Receive Date: 20120213
  Receipt Date: 20120203
  Transmission Date: 20120608
  Serious: Yes (Other)
  Sender: FDA-Public Use
  Company Number: US-BAYER-2012-004961

PATIENT
  Age: 23 Year
  Sex: Female
  Weight: 56.689 kg

DRUGS (12)
  1. DROSPIRENONE AND ETHINYL ESTRADIOL [Suspect]
     Dosage: UNK
     Dates: start: 20081101, end: 20091030
  2. MECLIZINE [Concomitant]
     Dosage: 25 MG, UNK
  3. CODEINE SULFATE [Concomitant]
  4. PAXIL [Concomitant]
     Dosage: 12.5 MG, QD
     Route: 048
  5. AZITHROMYCIN [Concomitant]
     Dosage: 250 MG, UNK
  6. PAROXETINE [Concomitant]
     Dosage: 12.5 MG, UNK
  7. TRIMETHOPRIM [Concomitant]
     Dosage: 800 MG, UNK
  8. PROMETHAZINE [Concomitant]
  9. IBUPROFEN [Concomitant]
  10. FRAGMIN [Concomitant]
  11. YASMIN [Suspect]
     Dosage: UNK
     Dates: start: 20081101, end: 20091030
  12. METRONIDAZOLE [Concomitant]
     Dosage: 500 MG, UNK

REACTIONS (3)
  - DEEP VEIN THROMBOSIS [None]
  - PULMONARY EMBOLISM [None]
  - INJURY [None]
